FAERS Safety Report 4423625-6 (Version None)
Quarter: 2004Q3

REPORT INFORMATION
  Report Type: 
  Country: None (occurrence: None)
  Receive Date: 20040719
  Receipt Date: 20040601
  Transmission Date: 20050211
  Serious: Yes (Other)
  Sender: FDA-Public Use
  Company Number: A03200401754

PATIENT
  Age: 79 Year
  Sex: Male
  Weight: 78.9259 kg

DRUGS (8)
  1. UROXATRAL [Suspect]
     Indication: BENIGN PROSTATIC HYPERPLASIA
     Dosage: 10 MG OD; ORAL
     Route: 048
     Dates: start: 20040527
  2. UROXATRAL [Suspect]
     Indication: BLADDER DISORDER
     Dosage: 10 MG OD; ORAL
     Route: 048
     Dates: start: 20040527
  3. UROXATRAL [Suspect]
     Indication: URINARY RETENTION
     Dosage: 10 MG OD; ORAL
     Route: 048
     Dates: start: 20040527
  4. ATORVASTATIN [Concomitant]
  5. IRON [Concomitant]
  6. INSULIN [Concomitant]
  7. CLOPIDOGREL BISULFATE [Concomitant]
  8. ACETYLSALICYLIC ACID [Concomitant]

REACTIONS (2)
  - BLOOD GLUCOSE INCREASED [None]
  - LOSS OF CONSCIOUSNESS [None]
